FAERS Safety Report 14636661 (Version 7)
Quarter: 2018Q3

REPORT INFORMATION
  Report Type: Spontaneous
  Country: JP (occurrence: JP)
  Receive Date: 20180314
  Receipt Date: 20180711
  Transmission Date: 20181010
  Serious: Yes (Other)
  Sender: FDA-Public Use
  Company Number: JP-PFIZER INC-2018045344

PATIENT
  Age: 60 Year
  Sex: Female
  Weight: 49 kg

DRUGS (7)
  1. IBRANCE [Suspect]
     Active Substance: PALBOCICLIB
     Indication: BREAST CANCER METASTATIC
     Dosage: 125 MG, 1X/DAY
     Route: 048
     Dates: start: 20180114, end: 20180127
  2. IBRANCE [Suspect]
     Active Substance: PALBOCICLIB
     Dosage: 100 MG, 1X/DAY
     Dates: start: 20180411, end: 20180424
  3. RANMARK [Concomitant]
     Active Substance: DENOSUMAB
     Dosage: 120 UNK, 1X/DAY
     Route: 058
  4. MUCOSTA [Concomitant]
     Active Substance: REBAMIPIDE
     Dosage: 100, UNK, 3X/DAY
     Route: 048
     Dates: end: 20180424
  5. FEMARA [Concomitant]
     Active Substance: LETROZOLE
     Dosage: 2.5, UNK, 1X/DAY
     Route: 048
     Dates: start: 20180114, end: 20180424
  6. IBRANCE [Suspect]
     Active Substance: PALBOCICLIB
     Dosage: 100 MG, 1X/DAY
     Route: 048
     Dates: start: 20180214, end: 20180303
  7. IBRANCE [Suspect]
     Active Substance: PALBOCICLIB
     Dosage: 100 MG, 1X/DAY
     Route: 048
     Dates: start: 20180314, end: 20180403

REACTIONS (11)
  - Erythema [Recovering/Resolving]
  - Oropharyngeal pain [Recovered/Resolved]
  - Cough [Recovered/Resolved]
  - Rash erythematous [Recovering/Resolving]
  - Haemoglobin decreased [Unknown]
  - Bone marrow failure [Recovered/Resolved]
  - Aspartate aminotransferase increased [Recovered/Resolved]
  - Blood lactate dehydrogenase increased [Unknown]
  - Neoplasm progression [Unknown]
  - Blood alkaline phosphatase increased [Unknown]
  - Exfoliative rash [Recovering/Resolving]

NARRATIVE: CASE EVENT DATE: 20180127
